FAERS Safety Report 7182935-2 (Version None)
Quarter: 2010Q4

REPORT INFORMATION
  Report Type: 
  Country: None (occurrence: None)
  Receive Date: 20101210
  Receipt Date: 20101206
  Transmission Date: 20110411
  Serious: Yes (Hospitalization)
  Sender: FDA-Public Use
  Company Number: DSA_44468_2010

PATIENT
  Sex: Male

DRUGS (9)
  1. DILTIAZEM HCL [Suspect]
     Indication: PRODUCT USED FOR UNKNOWN INDICATION
     Dosage: (DF)
     Dates: end: 20101103
  2. APIXABAN (APIXABAN) [Suspect]
     Indication: THROMBOSIS PROPHYLAXIS
     Dosage: (10 MG QD ORAL)
     Route: 048
     Dates: start: 20100506, end: 20101103
  3. PLACEBO [Suspect]
     Indication: THROMBOSIS PROPHYLAXIS
     Dosage: (DF ORAL)
     Route: 048
     Dates: start: 20100506, end: 20101102
  4. METOPROLOL (METOPROL) [Suspect]
     Indication: PRODUCT USED FOR UNKNOWN INDICATION
     Dosage: (DF)
     Dates: start: 20100430, end: 20101103
  5. PERINDOPRIL [Concomitant]
  6. ATORVASTATIN [Concomitant]
  7. ASPIRIN [Concomitant]
  8. NITROGLYCERIN [Concomitant]
  9. CLOPIDOGREL BISULFATE [Concomitant]

REACTIONS (3)
  - BLOOD PRESSURE DECREASED [None]
  - SYNCOPE [None]
  - TACHYARRHYTHMIA [None]
